FAERS Safety Report 15893500 (Version 2)
Quarter: 2019Q2

REPORT INFORMATION
  Report Type: Spontaneous
  Country: US (occurrence: US)
  Receive Date: 20190131
  Receipt Date: 20190422
  Transmission Date: 20190711
  Serious: Yes (Hospitalization, Other)
  Sender: FDA-Public Use
  Company Number: US-AUROBINDO-AUR-APL-2019-002674

PATIENT

DRUGS (2)
  1. METFORMIN TABLET [Suspect]
     Active Substance: METFORMIN HYDROCHLORIDE
     Indication: WEIGHT DECREASED
  2. METFORMIN TABLET [Suspect]
     Active Substance: METFORMIN HYDROCHLORIDE
     Indication: AFFECTIVE DISORDER
     Dosage: 850 MILLIGRAM, SEVERAL TIMES/DAILY
     Route: 048

REACTIONS (24)
  - Respiratory distress [Unknown]
  - Oedema [Recovered/Resolved]
  - Pyrexia [Unknown]
  - Chills [Unknown]
  - Acute kidney injury [Unknown]
  - Myalgia [Unknown]
  - Weight decreased [Unknown]
  - Lactic acidosis [Unknown]
  - Abdominal pain [Unknown]
  - Product use in unapproved indication [Unknown]
  - Shock [Unknown]
  - Cough [Unknown]
  - Hallucination, visual [Unknown]
  - Metabolic acidosis [Unknown]
  - Drug abuse [Unknown]
  - Toxicity to various agents [Unknown]
  - Hypotension [Unknown]
  - Hypothermia [Unknown]
  - Asthenia [Unknown]
  - Influenza like illness [Unknown]
  - Renal tubular necrosis [Unknown]
  - Confusional state [Unknown]
  - Disorientation [Unknown]
  - Cachexia [Unknown]
